FAERS Safety Report 5887455-0 (Version None)
Quarter: 2008Q3

REPORT INFORMATION
  Report Type: 
  Country: None (occurrence: None)
  Receive Date: 20080915
  Receipt Date: 20080903
  Transmission Date: 20090109
  Serious: Yes (Hospitalization)
  Sender: FDA-Public Use
  Company Number: 1-16600249

PATIENT
  Age: 79 Year
  Sex: Male

DRUGS (10)
  1. FLUCONAZOLE [Suspect]
     Dosage: UNK UNK ORAL
     Route: 048
  2. SIMVASTATIN [Suspect]
     Dosage: UNK UNK ORAL
     Route: 048
  3. THIAMINE HCL [Concomitant]
  4. FOLATE [Concomitant]
  5. INSULIN [Concomitant]
  6. LISINOPRIL [Concomitant]
  7. TERAZOSIN HCL [Concomitant]
  8. TOLTERODINE [Concomitant]
  9. GOSERELIN [Concomitant]
  10. MOMETASONE INHALER [Concomitant]

REACTIONS (4)
  - CEREBROVASCULAR ACCIDENT [None]
  - DRUG INTERACTION [None]
  - PLATELET COUNT INCREASED [None]
  - RHABDOMYOLYSIS [None]
